FAERS Safety Report 8980116 (Version 1)
Quarter: 2012Q4

REPORT INFORMATION
  Report Type: 
  Country: CH (occurrence: CH)
  Receive Date: 20121221
  Receipt Date: 20121221
  Transmission Date: 20130627
  Serious: Yes (Other)
  Sender: FDA-Public Use
  Company Number: CH-JNJFOC-20121206838

PATIENT
  Age: 34 Year
  Sex: Female

DRUGS (7)
  1. REGAINE [Suspect]
     Route: 064
  2. REGAINE [Suspect]
     Indication: ANDROGENETIC ALOPECIA
     Route: 064
     Dates: start: 201201
  3. RIVOTRIL [Suspect]
     Indication: PRODUCT USED FOR UNKNOWN INDICATION
     Route: 064
     Dates: start: 2012
  4. ANDROCUR [Suspect]
     Indication: PRODUCT USED FOR UNKNOWN INDICATION
     Route: 064
     Dates: start: 201204
  5. CYPROTERONE ACETATE\ETHINYL ESTRADIOL [Suspect]
     Indication: PRODUCT USED FOR UNKNOWN INDICATION
     Route: 064
     Dates: start: 201201
  6. NORSOL [Suspect]
     Indication: URINARY TRACT INFECTION
     Dosage: for 3 days
     Route: 064
     Dates: start: 201204, end: 201204
  7. FLUCONAZOLE [Suspect]
     Indication: PRODUCT USED FOR UNKNOWN INDICATION
     Route: 064
     Dates: start: 201203, end: 201203

REACTIONS (2)
  - Exposure during pregnancy [Recovered/Resolved]
  - Premature labour [Recovered/Resolved]
